FAERS Safety Report 5255378-6 (Version None)
Quarter: 2007Q1

REPORT INFORMATION
  Report Type: 
  Country: None (occurrence: None)
  Receive Date: 20070305
  Receipt Date: 20070301
  Transmission Date: 20070707
  Serious: Yes (Disabling)
  Sender: FDA-Public Use
  Company Number: DE-JNJFOC-20070205065

PATIENT
  Age: 92 Year
  Sex: Female

DRUGS (3)
  1. TARIVID [Suspect]
     Indication: URINARY TRACT INFECTION
     Route: 048
  2. NAPROXEN [Concomitant]
     Route: 065
  3. ANTIHYPERTENSIVE NOS [Concomitant]
     Indication: HYPERTENSION
     Route: 065

REACTIONS (2)
  - AUTOIMMUNE DISORDER [None]
  - TENDONITIS [None]
